FAERS Safety Report 6262966-7 (Version None)
Quarter: 2009Q3

REPORT INFORMATION
  Report Type: 
  Country: None (occurrence: None)
  Receive Date: 20090709
  Receipt Date: 20090701
  Transmission Date: 20100115
  Serious: Yes (Hospitalization)
  Sender: FDA-Public Use
  Company Number: US-GENENTECH-286052

PATIENT

DRUGS (14)
  1. BLINDED BEVACIZUMAB [Suspect]
     Indication: BREAST CANCER
     Dosage: 10 MG/KG, UNK
     Route: 042
     Dates: start: 20090225
  2. CYCLOPHOSPHAMIDE [Suspect]
     Indication: BREAST CANCER
     Dosage: 10 MG/KG, UNK
     Route: 042
     Dates: start: 20090225
  3. DOXORUBICIN HCL [Suspect]
     Indication: BREAST CANCER
     Dosage: 10 MG/KG, UNK
     Route: 042
     Dates: start: 20090225
  4. BLINDED PACLITAXEL [Suspect]
     Indication: BREAST CANCER
     Dosage: 10 MG/KG, UNK
     Route: 042
     Dates: start: 20090225
  5. BLINDED PLACEBO [Suspect]
     Indication: BREAST CANCER
     Dosage: 10 MG/KG, UNK
     Route: 042
     Dates: start: 20090225
  6. BLINDED BEVACIZUMAB [Suspect]
     Dosage: 15 MG/KG, UNK
     Route: 042
  7. CYCLOPHOSPHAMIDE [Suspect]
     Dosage: 15 MG/KG, UNK
     Route: 042
  8. DOXORUBICIN HCL [Suspect]
     Dosage: 15 MG/KG, UNK
     Route: 042
  9. BLINDED PACLITAXEL [Suspect]
     Dosage: 15 MG/KG, UNK
     Route: 042
  10. BLINDED PLACEBO [Suspect]
     Dosage: 15 MG/KG, UNK
     Route: 042
  11. DOXORUBICIN HCL [Suspect]
     Indication: BREAST CANCER
     Dosage: 60 MG/M2, UNK
     Route: 042
     Dates: start: 20090225
  12. CYCLOPHOSPHAMIDE [Suspect]
     Indication: BREAST CANCER
     Dosage: 600 MG/M2, UNK
     Route: 042
     Dates: start: 20090225
  13. FILGRASTIM [Suspect]
     Indication: BREAST CANCER
     Dosage: 5 A?G/KG, UNK
     Route: 058
     Dates: start: 20090225
  14. PACLITAXEL [Suspect]
     Indication: BREAST CANCER
     Dosage: 80 MG/M2, DAYS1,8,15
     Route: 042

REACTIONS (1)
  - PNEUMONITIS [None]
